FAERS Safety Report 19155041 (Version 1)
Quarter: 2021Q2

REPORT INFORMATION
  Report Type: Spontaneous
  Country: US (occurrence: US)
  Receive Date: 20210419
  Receipt Date: 20210419
  Transmission Date: 20210717
  Serious: Yes (Other)
  Sender: FDA-Public Use
  Company Number: US-PFIZER INC-2021389821

PATIENT
  Age: 75 Year

DRUGS (2)
  1. DILANTIN [Suspect]
     Active Substance: PHENYTOIN
     Indication: EPILEPSY
     Dosage: UNK
  2. DILANTIN [Suspect]
     Active Substance: PHENYTOIN
     Indication: SEIZURE

REACTIONS (9)
  - Irritability [Unknown]
  - Memory impairment [Unknown]
  - Asthma [Unknown]
  - Drug ineffective [Unknown]
  - Osteopenia [Unknown]
  - Stress [Unknown]
  - Thinking abnormal [Unknown]
  - Brain injury [Unknown]
  - Frustration tolerance decreased [Unknown]

NARRATIVE: CASE EVENT DATE: 2021
